FAERS Safety Report 13504917 (Version 1)
Quarter: 2017Q2

REPORT INFORMATION
  Report Type: Spontaneous
  Country: NL (occurrence: NL)
  Receive Date: 20170502
  Receipt Date: 20170502
  Transmission Date: 20170830
  Serious: Yes (Hospitalization, Other)
  Sender: FDA-Public Use
  Company Number: NL-TEVA-765242ROM

PATIENT
  Age: 81 Year
  Sex: Male
  Weight: 73 kg

DRUGS (6)
  1. CALCI CHEW KAUWTABLET 500MG [Concomitant]
     Route: 048
  2. RANITIDINE HYDROCHLORIDE. [Concomitant]
     Active Substance: RANITIDINE HYDROCHLORIDE
     Route: 048
  3. URSODEOXYCHOLZUUR [Concomitant]
     Route: 048
  4. SYMBICORT TURBUHALER INHALATIEPOEDER 100/6MCG/DO 120 DO [Concomitant]
     Indication: OBSTRUCTIVE AIRWAYS DISORDER
     Route: 055
  5. PREDNISON [Suspect]
     Active Substance: PREDNISONE
     Indication: LIVER FUNCTION TEST ABNORMAL
     Route: 048
     Dates: start: 20170201
  6. FINASTERIDE. [Concomitant]
     Active Substance: FINASTERIDE
     Route: 048

REACTIONS (4)
  - Epistaxis [Recovering/Resolving]
  - Anaemia [Unknown]
  - Fatigue [Unknown]
  - Faeces discoloured [Unknown]

NARRATIVE: CASE EVENT DATE: 20170201
